FAERS Safety Report 12683250 (Version 3)
Quarter: 2019Q4

REPORT INFORMATION
  Report Type: Spontaneous
  Country: US (occurrence: US)
  Receive Date: 20160825
  Receipt Date: 20191212
  Transmission Date: 20200122
  Serious: Yes (Other)
  Sender: FDA-Public Use
  Company Number: US-TEVA-687234ACC

PATIENT
  Age: 31 Year
  Sex: Female

DRUGS (1)
  1. PARAGARD T 380A [Suspect]
     Active Substance: COPPER
     Indication: CONTRACEPTION
     Dates: start: 20160127

REACTIONS (6)
  - Uterine malposition [Not Recovered/Not Resolved]
  - Device dislocation [Recovered/Resolved]
  - Device dislocation [Recovered/Resolved]
  - Cervical cyst [Unknown]
  - Maternal exposure during pregnancy [Unknown]
  - Device expulsion [Recovered/Resolved]

NARRATIVE: CASE EVENT DATE: 20160713
